FAERS Safety Report 10039818 (Version 1)
Quarter: 2014Q1

REPORT INFORMATION
  Report Type: Spontaneous
  Country: US (occurrence: US)
  Receive Date: 20140326
  Receipt Date: 20140326
  Transmission Date: 20141002
  Serious: Yes (Hospitalization)
  Sender: FDA-Public Use
  Company Number: US-JNJFOC-20140311092

PATIENT
  Age: 93 Year
  Sex: Female

DRUGS (2)
  1. XARELTO [Suspect]
     Indication: EMBOLISM VENOUS
     Route: 048
     Dates: start: 2014, end: 201403
  2. XARELTO [Suspect]
     Indication: HIP FRACTURE
     Route: 048
     Dates: start: 2014, end: 201403

REACTIONS (1)
  - Pulmonary embolism [Unknown]
